FAERS Safety Report 7790019-5 (Version None)
Quarter: 2011Q3

REPORT INFORMATION
  Report Type: 
  Country: None (occurrence: None)
  Receive Date: 20110930
  Receipt Date: 20100901
  Transmission Date: 20111222
  Serious: Yes (Hospitalization)
  Sender: FDA-Public Use
  Company Number: US-ASTRAZENECA-2010SE32033

PATIENT
  Sex: Female

DRUGS (2)
  1. ARIMIDEX [Suspect]
     Indication: BREAST CANCER
     Route: 048
     Dates: start: 20100125, end: 20100707
  2. WELLBUTRIN [Concomitant]
     Route: 048

REACTIONS (2)
  - DYSPNOEA [None]
  - PULMONARY THROMBOSIS [None]
